FAERS Safety Report 17130400 (Version 2)
Quarter: 2020Q1

REPORT INFORMATION
  Report Type: Report from Study
  Country: US (occurrence: US)
  Receive Date: 20191209
  Receipt Date: 20200131
  Transmission Date: 20200409
  Serious: Yes (Hospitalization)
  Sender: FDA-Public Use
  Company Number: US-ACTELION-A-US2016-140784

PATIENT
  Age: 75 Year
  Sex: Female
  Weight: 70.75 kg

DRUGS (11)
  1. OPSUMIT [Suspect]
     Active Substance: MACITENTAN
     Indication: PULMONARY HYPERTENSION
     Dosage: 10 MG, QD
     Route: 048
     Dates: start: 20150520
  2. REVATIO [Concomitant]
     Active Substance: SILDENAFIL CITRATE
  3. ELIQUIS [Concomitant]
     Active Substance: APIXABAN
  4. UPTRAVI [Suspect]
     Active Substance: SELEXIPAG
     Dosage: 200 MCG, BID
     Route: 048
  5. OPSUMIT [Suspect]
     Active Substance: MACITENTAN
     Dosage: 10 MG, QD
     Route: 048
  6. REMODULIN [Concomitant]
     Active Substance: TREPROSTINIL
     Dosage: 1.25 NG/KG, PER MIN
     Route: 042
     Dates: start: 20170927
  7. UPTRAVI [Suspect]
     Active Substance: SELEXIPAG
     Dosage: UNK
     Route: 048
     Dates: start: 20160728
  8. REMODULIN [Concomitant]
     Active Substance: TREPROSTINIL
     Dosage: 2.5 NG/KG, PER MIN
     Route: 058
  9. UPTRAVI [Suspect]
     Active Substance: SELEXIPAG
     Indication: PULMONARY HYPERTENSION
     Dosage: 1600 MCG, BID
     Route: 048
  10. UPTRAVI [Suspect]
     Active Substance: SELEXIPAG
     Dosage: 1400 MCG, BID
     Route: 048
  11. UPTRAVI [Suspect]
     Active Substance: SELEXIPAG
     Dosage: 1000 MCG, BID
     Route: 048

REACTIONS (28)
  - Chest pain [Unknown]
  - Gastrooesophageal reflux disease [Not Recovered/Not Resolved]
  - Headache [Unknown]
  - Pain in extremity [Unknown]
  - Abdominal discomfort [Unknown]
  - Administration site swelling [Unknown]
  - Administration site discolouration [Unknown]
  - Joint swelling [Unknown]
  - Vomiting [Unknown]
  - Catheter management [Unknown]
  - Cough [Unknown]
  - Administration site pain [Unknown]
  - Rales [Unknown]
  - Crepitations [Unknown]
  - Pyrexia [Unknown]
  - Pain in jaw [Unknown]
  - Diarrhoea [Unknown]
  - Sinusitis [Unknown]
  - Pruritus [Unknown]
  - Dyspepsia [Unknown]
  - Facial pain [Unknown]
  - Nausea [Unknown]
  - Nasopharyngitis [Unknown]
  - Catheter site pain [Unknown]
  - Abdominal pain upper [Unknown]
  - Burning sensation [Unknown]
  - Dyspnoea exertional [Unknown]
  - Oropharyngeal pain [Unknown]

NARRATIVE: CASE EVENT DATE: 20171105
